FAERS Safety Report 18602146 (Version 4)
Quarter: 2022Q3

REPORT INFORMATION
  Report Type: Report from Study
  Country: US (occurrence: US)
  Receive Date: 20201210
  Receipt Date: 20220921
  Transmission Date: 20221026
  Serious: Yes (Hospitalization)
  Sender: FDA-Public Use
  Company Number: US-SHIRE-US201942315AA

PATIENT
  Sex: Female

DRUGS (1)
  1. HUMAN IMMUNOGLOBULIN G [Suspect]
     Active Substance: HUMAN IMMUNOGLOBULIN G
     Indication: Primary immunodeficiency syndrome
     Dosage: UNK
     Route: 042

REACTIONS (7)
  - Abdominal neoplasm [Unknown]
  - Illness [Unknown]
  - Bone disorder [Unknown]
  - Anaemia [Unknown]
  - Bronchitis [Unknown]
  - Cholelithiasis [Unknown]
  - Inappropriate schedule of product administration [Unknown]
